FAERS Safety Report 9265598 (Version 2)
Quarter: 2013Q3

REPORT INFORMATION
  Report Type: Report from Study
  Country: JP (occurrence: JP)
  Receive Date: 20130501
  Receipt Date: 20130703
  Transmission Date: 20140515
  Serious: Yes (Death, Life-Threatening)
  Sender: FDA-Public Use
  Company Number: JP-009507513-1212JPN011226

PATIENT
  Age: 59 Year
  Sex: Male
  Weight: 65 kg

DRUGS (16)
  1. TEMODAL [Suspect]
     Indication: ANAPLASTIC ASTROCYTOMA
     Dosage: 75 MG/M2, QD
     Route: 048
     Dates: start: 20101025, end: 20101207
  2. TEMODAL [Suspect]
     Dosage: 150 MG/M2, QD
     Route: 048
     Dates: start: 20110104, end: 20110108
  3. TEMODAL [Suspect]
     Dosage: 200 MG/M2, QD
     Route: 048
     Dates: start: 20110201, end: 20110205
  4. TEMODAL [Suspect]
     Dosage: 200 MG/M2, QD
     Route: 048
     Dates: start: 20110301, end: 20110305
  5. TEMODAL [Suspect]
     Dosage: 200 MG/M2, QD
     Route: 048
     Dates: start: 20110329, end: 20110402
  6. TEMODAL [Suspect]
     Dosage: 200 MG/M2, QD
     Route: 048
     Dates: start: 20110426, end: 20110430
  7. TEMODAL [Suspect]
     Dosage: 200 MG/M2, QD
     Route: 048
     Dates: start: 20110524, end: 20110528
  8. TEMODAL [Suspect]
     Dosage: 200 MG/M2, QD
     Route: 048
     Dates: start: 20110621, end: 20110625
  9. TEMODAL [Suspect]
     Dosage: 200 MG/M2, QD
     Route: 048
     Dates: start: 20110719, end: 20110723
  10. TEMODAL [Suspect]
     Dosage: 200 MG/M2, QD
     Route: 048
     Dates: start: 20110816, end: 20110820
  11. TEMODAL [Suspect]
     Dosage: 200 MG/M2, QD
     Route: 048
     Dates: start: 20110913, end: 20110917
  12. TEMODAL [Suspect]
     Dosage: 200 MG/M2, QD
     Route: 048
     Dates: start: 20111115, end: 20111119
  13. TEMODAL [Suspect]
     Dosage: 200 MG/M2, QD
     Route: 048
     Dates: start: 20111213, end: 20111217
  14. TEMODAL [Suspect]
     Dosage: 200 MG/M2, QD
     Route: 048
     Dates: start: 20120110, end: 20120114
  15. ZYLORIC [Concomitant]
     Dosage: DAILY DOSE UNKNOWN
     Route: 048
     Dates: start: 20101025
  16. TEGRETOL [Concomitant]
     Dosage: DAILY DOSE UNKNOWN
     Route: 048
     Dates: start: 20101025

REACTIONS (4)
  - Gastric cancer [Fatal]
  - Metastases to liver [Fatal]
  - Wound infection [Recovered/Resolved]
  - Platelet count decreased [Not Recovered/Not Resolved]
